FAERS Safety Report 5963429-6 (Version None)
Quarter: 2008Q4

REPORT INFORMATION
  Report Type: 
  Country: None (occurrence: None)
  Receive Date: 20081121
  Receipt Date: 20081121
  Transmission Date: 20090506
  Serious: Yes (Hospitalization)
  Sender: FDA-Public Use
  Company Number: None

PATIENT
  Age: 58 Year
  Sex: Male
  Weight: 133 kg

DRUGS (12)
  1. WARFARIN SODIUM [Suspect]
     Indication: THROMBOSIS PROPHYLAXIS
     Dosage: 10MG X 5D
  2. WARFARIN SODIUM [Suspect]
     Dosage: 15 MG X2D
  3. ASPIRIN [Concomitant]
  4. METFORMIN HCL [Concomitant]
  5. INSULIN [Concomitant]
  6. LASIX [Concomitant]
  7. ATORVASTATIN [Concomitant]
  8. METOPROLOL TARTRATE [Concomitant]
  9. GABAPENTIN [Concomitant]
  10. PRILOSEC [Concomitant]
  11. QUINAPRIL [Concomitant]
  12. AMIODARONE HCL [Concomitant]

REACTIONS (3)
  - INTERNATIONAL NORMALISED RATIO INCREASED [None]
  - JOINT EFFUSION [None]
  - OEDEMA PERIPHERAL [None]
